FAERS Safety Report 7668041-9 (Version None)
Quarter: 2011Q3

REPORT INFORMATION
  Report Type: 
  Country: None (occurrence: None)
  Receive Date: 20110808
  Receipt Date: 20110802
  Transmission Date: 20111222
  Serious: No
  Sender: FDA-Public Use
  Company Number: US-PFIZER INC-2011176642

PATIENT
  Sex: Female
  Weight: 131.52 kg

DRUGS (5)
  1. CELEBREX [Suspect]
  2. LEVOTHYROXINE [Concomitant]
     Indication: THYROID DISORDER
     Dosage: UNK
  3. LYRICA [Suspect]
     Indication: OSTEOARTHRITIS
     Dosage: 75 MG, 2X/DAY
     Route: 048
     Dates: start: 20110706
  4. CELEBREX [Suspect]
     Indication: OSTEOARTHRITIS
     Dosage: 200 MG, 1X/DAY
     Route: 048
     Dates: start: 20110706, end: 20110801
  5. LYRICA [Suspect]

REACTIONS (4)
  - DIARRHOEA [None]
  - DRUG INEFFECTIVE [None]
  - NAUSEA [None]
  - GAIT DISTURBANCE [None]
